FAERS Safety Report 8311981-8 (Version None)
Quarter: 2012Q2

REPORT INFORMATION
  Report Type: 
  Country: None (occurrence: None)
  Receive Date: 20120425
  Receipt Date: 20120418
  Transmission Date: 20120825
  Serious: No
  Sender: FDA-Public Use
  Company Number: US-BAYER-2012-038655

PATIENT
  Age: 64 Year
  Sex: Female
  Weight: 79 kg

DRUGS (3)
  1. ALEVE (CAPLET) [Suspect]
     Dosage: UNK
     Route: 048
  2. SYNTHROID [Concomitant]
  3. AMOXICILLIN [Concomitant]

REACTIONS (2)
  - HYPOAESTHESIA ORAL [None]
  - FEELING COLD [None]
